FAERS Safety Report 7873933-1 (Version None)
Quarter: 2011Q4

REPORT INFORMATION
  Report Type: 
  Country: None (occurrence: None)
  Receive Date: 20111017
  Receipt Date: 20110223
  Transmission Date: 20120403
  Serious: Yes (Hospitalization)
  Sender: FDA-Public Use
  Company Number: 2011S1000124

PATIENT
  Sex: Male

DRUGS (5)
  1. FLEXERIL [Concomitant]
  2. OTHER UNSPECIFIED MEDICATIONS [Concomitant]
  3. CHOLERTEROL MEDICATION [Concomitant]
  4. BLOOD PRESSURE MEDICATIONS [Concomitant]
  5. DARVOCET-N 100 [Suspect]
     Indication: BACK PAIN
     Dosage: (AS REQUIRED),ORAL
     Route: 048
     Dates: end: 20101201

REACTIONS (2)
  - CORONARY ARTERY DISEASE [None]
  - MYOCARDIAL INFARCTION [None]
